FAERS Safety Report 10461182 (Version 1)
Quarter: 2014Q3

REPORT INFORMATION
  Report Type: Spontaneous
  Country: US (occurrence: None)
  Receive Date: 20140917
  Receipt Date: 20140917
  Transmission Date: 20150326
  Serious: Yes (Other)
  Sender: FDA-Public Use
  Company Number: None

PATIENT
  Age: 62 Year
  Sex: Male
  Weight: 78.93 kg

DRUGS (1)
  1. PRASUGREL [Suspect]
     Active Substance: PRASUGREL
     Indication: CORONARY ARTERIAL STENT INSERTION
     Dosage: 1 PILL  QD ORAL
     Route: 048

REACTIONS (2)
  - Abdominal pain upper [None]
  - Liver function test abnormal [None]

NARRATIVE: CASE EVENT DATE: 20140331
